FAERS Safety Report 16228032 (Version 1)
Quarter: 2019Q2

REPORT INFORMATION
  Report Type: Spontaneous
  Country: US (occurrence: US)
  Receive Date: 20190418
  Receipt Date: 20190418
  Transmission Date: 20190711
  Serious: No
  Sender: FDA-Public Use
  Company Number: None

PATIENT

DRUGS (1)
  1. STERILE WATER [Suspect]
     Active Substance: WATER

REACTIONS (5)
  - Device issue [None]
  - Circumstance or information capable of leading to medication error [None]
  - Product design issue [None]
  - Product label issue [None]
  - Circumstance or information capable of leading to device use error [None]

NARRATIVE: CASE EVENT DATE: 20190412
